FAERS Safety Report 5213525-6 (Version None)
Quarter: 2007Q1

REPORT INFORMATION
  Report Type: 
  Country: None (occurrence: None)
  Receive Date: 20070119
  Receipt Date: 20070110
  Transmission Date: 20070707
  Serious: Yes (Hospitalization)
  Sender: FDA-Public Use
  Company Number: JP-ROCHE-476226

PATIENT
  Age: 15 Year
  Sex: Female
  Weight: 38 kg

DRUGS (3)
  1. TAMIFLU [Suspect]
     Route: 048
     Dates: start: 20061215, end: 20061217
  2. BRUFEN [Concomitant]
     Route: 048
     Dates: start: 20061215, end: 20061217
  3. FAROM [Concomitant]
     Route: 048
     Dates: start: 20051215, end: 20051217

REACTIONS (1)
  - DEPRESSED LEVEL OF CONSCIOUSNESS [None]
